FAERS Safety Report 22299163 (Version 1)
Quarter: 2023Q2

REPORT INFORMATION
  Report Type: Spontaneous
  Country: CN (occurrence: None)
  Receive Date: 20230509
  Receipt Date: 20230509
  Transmission Date: 20230721
  Serious: Yes (Death)
  Sender: FDA-Public Use
  Company Number: 2023A106369

PATIENT
  Age: 60 Year
  Sex: Male
  Weight: 50 kg

DRUGS (3)
  1. IMFINZI [Suspect]
     Active Substance: DURVALUMAB
     Indication: Small cell lung cancer extensive stage
     Dosage: THE LAST TREATMENT DATE WAS 8-FEB-2023. THE LAST DOSE OF MEDICATION WAS 1000 MG/CYCLE1000.0MG UNK...
     Dates: start: 20230207
  2. ETOPOSIDE [Concomitant]
     Active Substance: ETOPOSIDE
     Indication: Small cell lung cancer extensive stage
  3. CARBOPLATIN [Concomitant]
     Active Substance: CARBOPLATIN
     Indication: Small cell lung cancer extensive stage

REACTIONS (1)
  - Death [Fatal]
